FAERS Safety Report 8397683 (Version 2)
Quarter: 2013Q2

REPORT INFORMATION
  Report Type: Spontaneous
  Country: US (occurrence: None)
  Receive Date: 20111227
  Receipt Date: 20120426
  Transmission Date: 20140414
  Serious: No
  Sender: FDA-Public Use
  Company Number: PHEH2011US010165

PATIENT
  Age: 49 Year
  Sex: Female

DRUGS (7)
  1. GILENYA [Suspect]
     Indication: MULTIPLE SCLEROSIS
     Dosage: 0.5 MG, QD, ORAL
     Route: 048
  2. PREMARIN [Concomitant]
  3. BACLOFEN [Concomitant]
  4. FAMPRIDINE (FAMPRIDINE) [Concomitant]
  5. CYMBALTA [Concomitant]
  6. NUVIGIL [Concomitant]
  7. AMBIEN [Concomitant]

REACTIONS (1)
  - FATIGUE [None]
